FAERS Safety Report 4767142-2 (Version None)
Quarter: 2005Q3

REPORT INFORMATION
  Report Type: 
  Country: None (occurrence: None)
  Receive Date: 20050909
  Receipt Date: 20050909
  Transmission Date: 20060218
  Serious: Yes (Death)
  Sender: FDA-Public Use
  Company Number: None

PATIENT
  Age: 60 Year
  Sex: Male
  Weight: 102.0593 kg

DRUGS (1)
  1. BIAXIN XL [Suspect]
     Indication: HYPERSENSITIVITY
     Dosage: 2 A DAY
     Dates: start: 20050413, end: 20050420

REACTIONS (2)
  - ASTHENIA [None]
  - CIRCULATORY COLLAPSE [None]
